FAERS Safety Report 7496251-2 (Version None)
Quarter: 2011Q2

REPORT INFORMATION
  Report Type: 
  Country: None (occurrence: None)
  Receive Date: 20110523
  Receipt Date: 20110520
  Transmission Date: 20111010
  Serious: Yes (Death)
  Sender: FDA-Public Use
  Company Number: PHFR2010GB05293

PATIENT
  Sex: Male

DRUGS (8)
  1. DIAZEPAM [Concomitant]
     Dosage: 2 MG MAX 4 PER WEEK
     Route: 048
  2. CLOZARIL [Suspect]
     Indication: SCHIZOPHRENIA
     Dosage: UNK
     Dates: start: 19940621
  3. LACTULOSE [Concomitant]
     Route: 048
  4. SENNA-MINT WAF [Concomitant]
     Route: 048
  5. METFORMIN [Concomitant]
     Dosage: 500 MG, BID
  6. OMEPRAZOLE [Concomitant]
     Dosage: UNK
     Route: 048
  7. CLOZARIL [Suspect]
     Dosage: UNK
     Route: 048
     Dates: start: 20100611
  8. FLUOXETINE [Concomitant]
     Dosage: 60 MG/DAY
     Route: 048

REACTIONS (1)
  - LARGE INTESTINAL OBSTRUCTION [None]
